FAERS Safety Report 19806466 (Version 2)
Quarter: 2021Q3

REPORT INFORMATION
  Report Type: Spontaneous
  Country: US (occurrence: US)
  Receive Date: 20210909
  Receipt Date: 20210921
  Transmission Date: 20211014
  Serious: Yes (Other)
  Sender: FDA-Public Use
  Company Number: US-DRREDDYS-LIT/USA/21/0139809

PATIENT
  Age: 21 Year
  Sex: Female

DRUGS (1)
  1. OXYTOCIN. [Suspect]
     Active Substance: OXYTOCIN
     Indication: LABOUR INDUCTION

REACTIONS (2)
  - Maternal exposure timing unspecified [Unknown]
  - Ventricular tachycardia [Recovered/Resolved]
